FAERS Safety Report 17646455 (Version 1)
Quarter: 2020Q2

REPORT INFORMATION
  Report Type: Report from Study
  Country: BR (occurrence: BR)
  Receive Date: 20200408
  Receipt Date: 20200408
  Transmission Date: 20200713
  Serious: Yes (Other)
  Sender: FDA-Public Use
  Company Number: PHHY2017BR096890

PATIENT
  Age: 65 Year
  Sex: Female
  Weight: 63 kg

DRUGS (2)
  1. SANDOSTATIN LAR DEPOT [Suspect]
     Active Substance: OCTREOTIDE ACETATE
     Indication: ACROMEGALY
     Dosage: 30 MG, QMO
     Route: 030
     Dates: start: 201604
  2. SANDOSTATIN LAR DEPOT [Suspect]
     Active Substance: OCTREOTIDE ACETATE
     Dosage: UNK
     Route: 030
     Dates: start: 20181219

REACTIONS (18)
  - Pain [Unknown]
  - Plantar fasciitis [Not Recovered/Not Resolved]
  - Pain in extremity [Not Recovered/Not Resolved]
  - Limb discomfort [Unknown]
  - Syncope [Unknown]
  - Sleep disorder [Unknown]
  - Abdominal distension [Recovering/Resolving]
  - Malaise [Unknown]
  - Peripheral swelling [Recovered/Resolved]
  - Constipation [Unknown]
  - Fall [Unknown]
  - Peripheral swelling [Not Recovered/Not Resolved]
  - Hypertension [Unknown]
  - Pain in extremity [Recovered/Resolved]
  - Exostosis [Not Recovered/Not Resolved]
  - Gait disturbance [Unknown]
  - Gastrointestinal infection [Unknown]
  - Back pain [Unknown]

NARRATIVE: CASE EVENT DATE: 20181106
